FAERS Safety Report 11950846 (Version 1)
Quarter: 2016Q1

REPORT INFORMATION
  Report Type: Spontaneous
  Country: US (occurrence: US)
  Receive Date: 20160126
  Receipt Date: 20160126
  Transmission Date: 20160526
  Serious: No
  Sender: FDA-Public Use
  Company Number: US-PFIZER INC-2016027877

PATIENT
  Age: 70 Year
  Sex: Male

DRUGS (1)
  1. INLYTA [Suspect]
     Active Substance: AXITINIB
     Dosage: 10 MG, 2X/DAY
     Dates: start: 20151222, end: 20151231

REACTIONS (3)
  - Nausea [Unknown]
  - Dizziness [Unknown]
  - Lethargy [Unknown]

NARRATIVE: CASE EVENT DATE: 201512
